FAERS Safety Report 18244841 (Version 1)
Quarter: 2020Q3

REPORT INFORMATION
  Report Type: Spontaneous
  Country: UG (occurrence: UG)
  Receive Date: 20200909
  Receipt Date: 20200909
  Transmission Date: 20201103
  Serious: Yes (Other)
  Sender: FDA-Public Use
  Company Number: UG-EDENBRIDGE PHARMACEUTICALS, LLC-UG-2020EDE000037

PATIENT

DRUGS (8)
  1. PREDNISOLONE SODIUM PHOSPHATE. [Suspect]
     Active Substance: PREDNISOLONE SODIUM PHOSPHATE
     Indication: HIV INFECTION
     Dosage: 60 MG/M2, UNK
     Route: 048
  2. VINCRISTINE [Suspect]
     Active Substance: VINCRISTINE
     Indication: HIV INFECTION
     Dosage: 1.4 MG/M2, UNK
     Route: 042
  3. PREDNISOLONE SODIUM PHOSPHATE. [Suspect]
     Active Substance: PREDNISOLONE SODIUM PHOSPHATE
     Indication: NON-HODGKIN^S LYMPHOMA
  4. DOXORUBICIN [Suspect]
     Active Substance: DOXORUBICIN
     Indication: HIV INFECTION
     Dosage: 50 MG/M2, UNK
     Route: 042
  5. DOXORUBICIN [Suspect]
     Active Substance: DOXORUBICIN
     Indication: NON-HODGKIN^S LYMPHOMA
  6. VINCRISTINE [Suspect]
     Active Substance: VINCRISTINE
     Indication: NON-HODGKIN^S LYMPHOMA
  7. CYCLOPHOSPHAMIDE. [Suspect]
     Active Substance: CYCLOPHOSPHAMIDE
     Indication: NON-HODGKIN^S LYMPHOMA
  8. CYCLOPHOSPHAMIDE. [Suspect]
     Active Substance: CYCLOPHOSPHAMIDE
     Indication: HIV INFECTION
     Dosage: 750 MG/M2, UNK
     Route: 042

REACTIONS (1)
  - Thrombocytopenia [Unknown]
